FAERS Safety Report 25728186 (Version 4)
Quarter: 2025Q4

REPORT INFORMATION
  Report Type: Spontaneous
  Country: EU (occurrence: EU)
  Receive Date: 20250826
  Receipt Date: 20251014
  Transmission Date: 20260118
  Serious: No
  Sender: PFIZER
  Company Number: EU-PFIZER INC-PV202500100419

PATIENT
  Age: 66 Year
  Sex: Female

DRUGS (1)
  1. ENBREL [Suspect]
     Active Substance: ETANERCEPT
     Indication: Psoriatic arthropathy
     Dosage: 50 MG
     Route: 058

REACTIONS (2)
  - Drug dose omission by device [Unknown]
  - Device issue [Unknown]

NARRATIVE: CASE EVENT DATE: 20250812
